FAERS Safety Report 17367351 (Version 1)
Quarter: 2020Q1

REPORT INFORMATION
  Report Type: Report from Study
  Country: CO (occurrence: CO)
  Receive Date: 20200204
  Receipt Date: 20200204
  Transmission Date: 20200409
  Serious: Yes (Hospitalization)
  Sender: FDA-Public Use
  Company Number: CO-BRISTOL-MYERS SQUIBB COMPANY-BMS-2020-003569

PATIENT
  Age: 22 Year
  Sex: Female

DRUGS (1)
  1. ABATACEPT [Suspect]
     Active Substance: ABATACEPT
     Indication: RHEUMATOID ARTHRITIS
     Dosage: 500 MILLIGRAM, Q4WK
     Route: 042
     Dates: start: 20130101

REACTIONS (4)
  - Oedema [Recovered/Resolved]
  - Joint effusion [Unknown]
  - Arthralgia [Recovered/Resolved]
  - Finger deformity [Recovered/Resolved]

NARRATIVE: CASE EVENT DATE: 20200110
